FAERS Safety Report 22065834 (Version 1)
Quarter: 2023Q1

REPORT INFORMATION
  Report Type: Spontaneous
  Country: US (occurrence: US)
  Receive Date: 20230306
  Receipt Date: 20230306
  Transmission Date: 20230418
  Serious: Yes (Death)
  Sender: FDA-Public Use
  Company Number: US-KI BIOPHARMA, LLC-2023KAM00003

PATIENT
  Age: 6 Month
  Sex: Male

DRUGS (4)
  1. CYTOMEGALOVIRUS IMMUNE GLOBULIN INTRAVENOUS (HUMAN) [Suspect]
     Active Substance: CYTOMEGALOVIRUS IMMUNE GLOBULIN INTRAVENOUS (HUMAN)
     Indication: Cytomegalovirus viraemia
     Dosage: UNKNOWN SCHEDULING
  2. CYTOMEGALOVIRUS IMMUNE GLOBULIN INTRAVENOUS (HUMAN) [Suspect]
     Active Substance: CYTOMEGALOVIRUS IMMUNE GLOBULIN INTRAVENOUS (HUMAN)
     Indication: Antiviral treatment
     Dosage: WEEKLY
  3. FOSCARNET [Concomitant]
     Active Substance: FOSCARNET
     Indication: Cytomegalovirus viraemia
     Dosage: 90 MG/KG/DOSE, EVERY 12 HOURS
     Route: 042
  4. FOSCARNET [Concomitant]
     Active Substance: FOSCARNET
     Dosage: 60 MG/KG, EVERY 8 HOURS

REACTIONS (1)
  - Drug ineffective for unapproved indication [Fatal]
